FAERS Safety Report 6301751-4 (Version None)
Quarter: 2009Q3

REPORT INFORMATION
  Report Type: 
  Country: None (occurrence: None)
  Receive Date: 20090807
  Receipt Date: 20090804
  Transmission Date: 20100115
  Serious: Yes (Other)
  Sender: FDA-Public Use
  Company Number: US-RB-015640-09

PATIENT
  Age: 43 Year
  Sex: Female

DRUGS (4)
  1. SUBOXONE [Suspect]
     Route: 060
     Dates: start: 20090427, end: 20090503
  2. SUBOXONE [Suspect]
     Route: 060
     Dates: start: 20090504, end: 20090513
  3. SUBOXONE [Suspect]
     Route: 060
     Dates: start: 20090514
  4. LEXAPRO [Concomitant]
     Indication: DEPRESSION

REACTIONS (4)
  - DRUG WITHDRAWAL SYNDROME [None]
  - FEELING ABNORMAL [None]
  - HALLUCINATION, AUDITORY [None]
  - INSOMNIA [None]
